FAERS Safety Report 6165178-0 (Version None)
Quarter: 2009Q2

REPORT INFORMATION
  Report Type: 
  Country: None (occurrence: None)
  Receive Date: 20090421
  Receipt Date: 20090415
  Transmission Date: 20091009
  Serious: Yes (Life-Threatening, Other)
  Sender: FDA-Public Use
  Company Number: 2008TJ0205FU2

PATIENT
  Age: 38 Year
  Sex: Female

DRUGS (6)
  1. TWINJECT 0.3 [Suspect]
     Indication: ANAPHYLACTIC REACTION
     Dosage: 0.3 MG,
  2. FENOFIBRATE [Concomitant]
  3. SIMVASTATIN [Concomitant]
  4. LORAZEPAM [Concomitant]
  5. IBUPROFEN [Concomitant]
  6. TYLENOL W/ CODEINE NO. 3 [Concomitant]

REACTIONS (5)
  - DEVICE MISUSE [None]
  - FRUSTRATION [None]
  - INCORRECT DOSE ADMINISTERED [None]
  - NEEDLE ISSUE [None]
  - WRONG TECHNIQUE IN DRUG USAGE PROCESS [None]
